FAERS Safety Report 7431971-7 (Version None)
Quarter: 2011Q2

REPORT INFORMATION
  Report Type: 
  Country: None (occurrence: None)
  Receive Date: 20110420
  Receipt Date: 20110420
  Transmission Date: 20111010
  Serious: Yes (Death, Life-Threatening, Hospitalization, Disabling, Congenital Anomaly, Other)
  Sender: FDA-Public Use
  Company Number: None

PATIENT
  Age: 41 Year
  Sex: Male
  Weight: 124.7392 kg

DRUGS (2)
  1. CYMBALTA [Suspect]
     Indication: FIBROMYALGIA
     Dosage: 60 MG 1 CAPSULE DAILY PO
     Route: 048
  2. CYMBALTA [Suspect]
     Indication: DEPRESSION
     Dosage: 60 MG 1 CAPSULE DAILY PO
     Route: 048

REACTIONS (1)
  - URINE OUTPUT DECREASED [None]
